FAERS Safety Report 5787111-3 (Version None)
Quarter: 2008Q2

REPORT INFORMATION
  Report Type: 
  Country: None (occurrence: None)
  Receive Date: 20080623
  Receipt Date: 20080623
  Transmission Date: 20081010
  Serious: Yes (Hospitalization)
  Sender: FDA-Public Use
  Company Number: None

PATIENT
  Age: 83 Year
  Sex: Male
  Weight: 79 kg

DRUGS (15)
  1. AVELOX [Suspect]
     Indication: PNEUMONIA
     Dosage: 400MG DAILY PO
     Route: 048
     Dates: start: 20080509, end: 20080513
  2. COUMADIN [Suspect]
     Indication: THROMBOSIS PROPHYLAXIS
     Dosage: 4MG, 5MG, 7.5MG DAILY PO
     Route: 048
     Dates: start: 20080508, end: 20080510
  3. LOVENOX [Concomitant]
  4. FUROSEMIDE [Concomitant]
  5. MAGNESIUM OXIDE [Concomitant]
  6. PREGABALIN [Concomitant]
  7. POTASSIUM CHLORIDE [Concomitant]
  8. SERTRALINE [Concomitant]
  9. PRILOSEC [Concomitant]
  10. METHYLPREDNISOLONE [Concomitant]
  11. ALBUTEROL/IPRATROPIUM NEBULIZER [Concomitant]
  12. ACETAMINOPHEN [Concomitant]
  13. COMBIVENT [Concomitant]
  14. COLACE [Concomitant]
  15. PREDNISONE 50MG TAB [Concomitant]

REACTIONS (1)
  - INTERNATIONAL NORMALISED RATIO INCREASED [None]
